FAERS Safety Report 9602050 (Version 3)
Quarter: 2013Q4

REPORT INFORMATION
  Report Type: Report from Study
  Country: JP (occurrence: JP)
  Receive Date: 20131007
  Receipt Date: 20131211
  Transmission Date: 20140711
  Serious: Yes (Death, Life-Threatening, Other)
  Sender: FDA-Public Use
  Company Number: PHHY2010JP19353

PATIENT
  Age: 84 Year
  Sex: Male
  Weight: 44 kg

DRUGS (19)
  1. ICL670A [Suspect]
     Indication: APLASTIC ANAEMIA
     Dosage: 875 MG, DAILY
     Route: 048
     Dates: start: 20081110, end: 20090113
  2. ICL670A [Suspect]
     Dosage: 500 MG, DAILY
     Route: 048
     Dates: start: 20090119, end: 20100524
  3. ANTITHYMOCYTE IMMUNOGLOBULIN [Suspect]
     Dosage: UNK UKN, UNK
  4. DESFERAL [Concomitant]
     Dosage: 1000 MG, UNK
     Route: 030
     Dates: start: 20060509, end: 20081027
  5. NEORAL [Concomitant]
     Indication: APLASTIC ANAEMIA
     Dosage: 40 MG, UNK
     Route: 048
     Dates: start: 20051115, end: 20100222
  6. NEORAL [Concomitant]
     Dosage: 100 MG, UNK
     Route: 048
     Dates: start: 20051115, end: 20100222
  7. BAKTAR [Concomitant]
     Indication: PROPHYLAXIS
     Dosage: 0.5 DF, UNK
     Route: 048
     Dates: start: 20051115
  8. DIFLUCAN [Concomitant]
     Indication: PROPHYLAXIS
     Dosage: 100 MG, UNK
     Route: 048
     Dates: start: 20051115
  9. LASIX [Concomitant]
     Dosage: 20 MG, UNK
     Route: 048
     Dates: start: 20080722
  10. FLUITRAN [Concomitant]
     Dosage: 2 MG, UNK
     Route: 048
     Dates: start: 20090202
  11. ZYLORIC [Concomitant]
     Dosage: 50 MG, UNK
     Route: 048
     Dates: start: 20090512
  12. DEPAS [Concomitant]
     Dosage: 0.5 MG, UNK
     Route: 048
     Dates: start: 20051115
  13. IMMUNOGLOBULIN ANTI-HUMAN-LYMPHOCYTIC [Concomitant]
     Indication: APLASTIC ANAEMIA
     Dosage: 200 MG, UNK
     Route: 042
     Dates: start: 20090327, end: 20090331
  14. JUVELA NICOTINATE [Concomitant]
     Indication: STOMATITIS
     Dosage: 600 MG, UNK
     Route: 048
     Dates: start: 20071029
  15. PANTETHINE [Concomitant]
     Dosage: 3 G, UNK
     Route: 048
     Dates: start: 20071126
  16. ALOSENN [Concomitant]
     Indication: CONSTIPATION
     Dosage: 1.5 MG, UNK
     Route: 048
     Dates: start: 20071126
  17. RED BLOOD CELLS, CONCENTRATED [Concomitant]
     Dosage: 2 U, EVERY 2 WEEKS
     Route: 042
     Dates: start: 20050824, end: 20090721
  18. RED BLOOD CELLS, CONCENTRATED [Concomitant]
     Dosage: 2 U EVERY WEEK
     Route: 042
     Dates: start: 20091111
  19. PLATELETS, HUMAN BLOOD [Concomitant]
     Dosage: 10 U, UNK
     Route: 042
     Dates: start: 20050811, end: 20090113

REACTIONS (9)
  - Aplastic anaemia [Fatal]
  - Condition aggravated [Fatal]
  - Acute myeloid leukaemia [Fatal]
  - Bone marrow disorder [Fatal]
  - Monocyte count increased [Fatal]
  - Lymphocyte count decreased [Fatal]
  - Platelet count decreased [Unknown]
  - Renal impairment [Not Recovered/Not Resolved]
  - Blood creatinine increased [Not Recovered/Not Resolved]
